FAERS Safety Report 4497051-8 (Version None)
Quarter: 2004Q4

REPORT INFORMATION
  Report Type: 
  Country: None (occurrence: None)
  Receive Date: 20041108
  Receipt Date: 20040913
  Transmission Date: 20050328
  Serious: Yes (Hospitalization, Disabling, Other)
  Sender: FDA-Public Use
  Company Number: USA040876553

PATIENT
  Age: 65 Year
  Sex: Female

DRUGS (5)
  1. ZYPREXA [Suspect]
     Indication: BIPOLAR I DISORDER
     Dosage: 20 MG/AT NIGHT
     Dates: start: 20040301
  2. PROZAC [Suspect]
     Dates: start: 19870101
  3. LEXAPRO [Concomitant]
  4. LISINOPRIL [Concomitant]
  5. DEPAKOTE [Concomitant]

REACTIONS (6)
  - BACK INJURY [None]
  - FALL [None]
  - HOARSENESS [None]
  - MEMORY IMPAIRMENT [None]
  - MYOCARDIAL INFARCTION [None]
  - UPPER LIMB FRACTURE [None]
